FAERS Safety Report 7577619-2 (Version None)
Quarter: 2011Q2

REPORT INFORMATION
  Report Type: 
  Country: None (occurrence: None)
  Receive Date: 20110621
  Receipt Date: 20110606
  Transmission Date: 20111010
  Serious: Yes (Hospitalization)
  Sender: FDA-Public Use
  Company Number: 2011MA006865

PATIENT
  Age: 41 Year
  Sex: Male

DRUGS (8)
  1. NICORANDIL [Concomitant]
  2. SLOW-RELEASE ISDN [Concomitant]
  3. NIFEDIPINE [Suspect]
     Indication: ATRIAL SEPTAL DEFECT
     Dosage: 40 MG;QD
  4. BENIDIPINE [Concomitant]
  5. GTN TAPE [Concomitant]
  6. ATENOLOL [Concomitant]
  7. FLUVASTATIN [Concomitant]
  8. MAGNESIUM OXIDE [Concomitant]

REACTIONS (7)
  - BLOOD TRIGLYCERIDES INCREASED [None]
  - DRUG TOLERANCE [None]
  - ARTERIOSPASM CORONARY [None]
  - NO THERAPEUTIC RESPONSE [None]
  - ANGINA PECTORIS [None]
  - GENERAL PHYSICAL HEALTH DETERIORATION [None]
  - DRUG RESISTANCE [None]
